FAERS Safety Report 8265450-4 (Version None)
Quarter: 2012Q2

REPORT INFORMATION
  Report Type: 
  Country: None (occurrence: None)
  Receive Date: 20120406
  Receipt Date: 20120329
  Transmission Date: 20120825
  Serious: Yes (Other)
  Sender: FDA-Public Use
  Company Number: US-AMGEN-USASP2012020413

PATIENT
  Sex: Male
  Weight: 77.098 kg

DRUGS (4)
  1. ENBREL [Suspect]
     Indication: JUVENILE ARTHRITIS
     Dosage: UNK
     Dates: end: 20080101
  2. CORTICOSTEROIDS [Suspect]
     Indication: EYE DISORDER
     Dosage: UNK
  3. METHOTREXATE [Concomitant]
     Indication: JUVENILE ARTHRITIS
     Dosage: UNK
  4. HUMIRA [Suspect]
     Indication: JUVENILE ARTHRITIS
     Dosage: 40 MG, Q2WK
     Route: 058
     Dates: start: 20080101

REACTIONS (4)
  - VISUAL IMPAIRMENT [None]
  - CATARACT [None]
  - EYE DISORDER [None]
  - OFF LABEL USE [None]
